FAERS Safety Report 9837269 (Version 1)
Quarter: 2013Q4

REPORT INFORMATION
  Report Type: Spontaneous
  Country: US (occurrence: None)
  Receive Date: 20131205
  Receipt Date: 20131205
  Transmission Date: 20140711
  Serious: Yes (Other)
  Sender: FDA-Public Use
  Company Number: 163-POMAL-13093517

PATIENT
  Age: 82 Year
  Sex: Female

DRUGS (6)
  1. POMALYST [Suspect]
     Route: 048
     Dates: start: 20130321
  2. FLECAINIDE ACETATE (FLECAINIDE ACETATE) [Concomitant]
  3. ASPIRIN (ACETYLSALICYLIC ACID) [Concomitant]
  4. VITAMIN D3 (COLECALCIFEROL) [Concomitant]
  5. DEXAMETHASONE (DEXAMETHASONE) [Concomitant]
  6. BENADRYL ALLERGY (BENADRYL ALLERGY) [Concomitant]

REACTIONS (3)
  - Abdominal distension [None]
  - Drug dose omission [None]
  - Diarrhoea [None]
